FAERS Safety Report 21734194 (Version 1)
Quarter: 2022Q4

REPORT INFORMATION
  Report Type: Spontaneous
  Country: US (occurrence: US)
  Receive Date: 20221215
  Receipt Date: 20221215
  Transmission Date: 20230112
  Serious: No
  Sender: FDA-Public Use
  Company Number: US-PFIZER INC-202201368883

PATIENT
  Age: 76 Year
  Sex: Female

DRUGS (14)
  1. PAXLOVID [Suspect]
     Active Substance: NIRMATRELVIR\RITONAVIR
     Indication: COVID-19 treatment
     Dosage: UNK
     Dates: start: 20221201, end: 20221206
  2. REMICADE [Concomitant]
     Active Substance: INFLIXIMAB
  3. METHOTREXATE [Concomitant]
     Active Substance: METHOTREXATE
  4. ISOSORBIDE [Concomitant]
     Active Substance: ISOSORBIDE
  5. CARVEDILOL [Concomitant]
     Active Substance: CARVEDILOL
  6. PRASUGREL [Concomitant]
     Active Substance: PRASUGREL
  7. ATORVASTATIN [Concomitant]
     Active Substance: ATORVASTATIN
     Dosage: UNK
     Dates: end: 20221201
  8. PANTOPRAZOLE SODIUM [Concomitant]
     Active Substance: PANTOPRAZOLE SODIUM
  9. LUBIPROSTONE [Concomitant]
     Active Substance: LUBIPROSTONE
  10. FOLIC ACID [Concomitant]
     Active Substance: FOLIC ACID
  11. VITAMIN D3 [Concomitant]
     Active Substance: CHOLECALCIFEROL
  12. PEARLS PROBIOTICS [Concomitant]
  13. COSAMIN DS [CHONDROITIN SULFATE SODIUM;GLUCOSAMINE HYDROCHLORIDE;MANGA [Concomitant]
  14. MINERALS\VITAMINS [Concomitant]
     Active Substance: MINERALS\VITAMINS

REACTIONS (2)
  - COVID-19 [Recovering/Resolving]
  - Disease recurrence [Recovering/Resolving]

NARRATIVE: CASE EVENT DATE: 20221210
